FAERS Safety Report 4690809-1 (Version None)
Quarter: 2005Q2

REPORT INFORMATION
  Report Type: 
  Country: None (occurrence: None)
  Receive Date: 20050615
  Receipt Date: 20050520
  Transmission Date: 20051028
  Serious: Yes (Other)
  Sender: FDA-Public Use
  Company Number: US-AMGEN-US135133

PATIENT
  Sex: Male
  Weight: 92.2 kg

DRUGS (10)
  1. ENBREL [Suspect]
     Indication: RHEUMATOID ARTHRITIS
     Route: 058
     Dates: start: 20040914, end: 20050429
  2. METHOTREXATE [Concomitant]
     Dates: start: 20040330
  3. LEUCOVORIN [Concomitant]
     Route: 048
  4. PROSCAR [Concomitant]
  5. VERAPAMIL [Concomitant]
  6. SELENIUM TRACE METAL ADDITIVE [Concomitant]
  7. PLAQUENIL [Concomitant]
     Dates: start: 20030624
  8. ASPIRIN [Concomitant]
     Dates: start: 20030207
  9. VITAMIN E [Concomitant]
     Dates: start: 20040914
  10. MULTIVIT [Concomitant]

REACTIONS (1)
  - PLATELET COUNT DECREASED [None]
